FAERS Safety Report 8766569 (Version 1)
Quarter: 2012Q4

REPORT INFORMATION
  Report Type: 
  Country: PK (occurrence: PK)
  Receive Date: 20120904
  Receipt Date: 20120904
  Transmission Date: 20130627
  Serious: Yes (Death, Hospitalization)
  Sender: FDA-Public Use
  Company Number: PHHY2012PK075347

PATIENT
  Age: 22 Year
  Sex: Male
  Weight: 27 kg

DRUGS (3)
  1. CIPROFLOXACIN [Suspect]
     Indication: DIARRHOEA
  2. METRONIDAZOLE [Suspect]
     Indication: DIARRHOEA
  3. FLUID/ELECTROLYTE REPLACEMENT THERAPY [Concomitant]
     Route: 042

REACTIONS (7)
  - Lower respiratory tract infection [Fatal]
  - Cytomegalovirus infection [Recovered/Resolved]
  - Pneumonia pneumococcal [Unknown]
  - Oesophageal candidiasis [Recovered/Resolved]
  - Neutropenia [Recovered/Resolved]
  - Diarrhoea [Unknown]
  - Rash maculo-papular [Recovered/Resolved]
